FAERS Safety Report 6740014-X (Version None)
Quarter: 2010Q2

REPORT INFORMATION
  Report Type: 
  Country: None (occurrence: None)
  Receive Date: 20100525
  Receipt Date: 20100517
  Transmission Date: 20101027
  Serious: Yes (Hospitalization)
  Sender: FDA-Public Use
  Company Number: US-ELI_LILLY_AND_COMPANY-US201005004189

PATIENT
  Sex: Female

DRUGS (2)
  1. PEMETREXED [Suspect]
     Indication: MESOTHELIOMA
     Dosage: 500 MG/M2, OTHER
     Route: 042
     Dates: start: 20100503
  2. CISPLATIN [Suspect]
     Indication: MESOTHELIOMA
     Dosage: 75 MG/M2, OTHER
     Route: 042
     Dates: start: 20100503

REACTIONS (1)
  - HYPONATRAEMIA [None]
